FAERS Safety Report 9549344 (Version 1)
Quarter: 2013Q3

REPORT INFORMATION
  Report Type: Spontaneous
  Country: GB (occurrence: AU)
  Receive Date: 20130924
  Receipt Date: 20130924
  Transmission Date: 20140515
  Serious: Yes (Death)
  Sender: FDA-Public Use
  Company Number: GB-PFIZER INC-2013266586

PATIENT
  Age: 67 Year
  Sex: Male

DRUGS (26)
  1. FLUOROURACIL [Suspect]
     Indication: COLON CANCER
     Dosage: 780 MG EVERY 2 WEEKS WITH DOSAGE FORM 400 MG/M2
     Route: 040
     Dates: start: 20130212, end: 20130702
  2. FLUOROURACIL [Suspect]
     Dosage: 4660 MG EVERY 2 WEEKS WITH DOSAGE FORM 2400 MG/M2
     Route: 042
     Dates: start: 20130212, end: 20130702
  3. OXALIPLATIN [Suspect]
     Indication: COLON CANCER
     Dosage: 165 MG EVERY 2 WEEKS WITH DOSAGE FORM 85 MG/M2
     Route: 042
     Dates: start: 20130212
  4. BEVACIZUMAB [Concomitant]
     Indication: COLON CANCER
     Dosage: 355 MG,EVERY 2 WEEKS WITH DOSAGE FORM 5 MG/KG
     Route: 042
     Dates: start: 20130212
  5. CALCIUM FOLINATE [Concomitant]
     Indication: COLON CANCER
     Dosage: 50 MG, EVERY 2 WEEKS WITH DOSAGE FORM 50 MG
     Route: 042
     Dates: start: 20130212
  6. OSTEVIT-D [Concomitant]
     Dosage: 1 DF, UNK
     Dates: start: 201209
  7. CHLORHEXIDINE [Concomitant]
     Dosage: UNK
  8. SYMBICORT [Concomitant]
     Dosage: 2 PUFFS TWICE IN ONE DAY
     Dates: start: 2003
  9. SPIRIVA [Concomitant]
     Dosage: 1 PUFF DAILY
     Dates: start: 2011
  10. ESOMEPRAZOLE MAGNESIUM [Concomitant]
     Dosage: 20 MG, 1X/DAY - TDD
     Dates: start: 201108
  11. OXYCONTIN [Concomitant]
     Dosage: 30 MG, 2X/DAY
     Dates: start: 20130212
  12. PARACETAMOL [Concomitant]
     Dosage: 1 G, AS NEEDED
     Dates: start: 201206
  13. PARACETAMOL [Concomitant]
     Dosage: 1 G, UNK
     Dates: start: 20130728
  14. OXYCODONE HYDROCHLORIDE [Concomitant]
     Dosage: 5 MG, AS NEEDED
     Dates: start: 20121225
  15. DUROGESIC DTRANS [Concomitant]
     Dosage: 300 MG, UNK (ONE IN THREE DAY)
     Dates: start: 20130212
  16. COLOXYL [Concomitant]
     Dosage: 2 DF, 2X/DAY
     Dates: start: 20130301
  17. DEXAMETHASONE [Concomitant]
     Dosage: 5 MG, UNK
     Dates: start: 20130212
  18. DEXAMETHASONE [Concomitant]
     Dosage: UNK
     Dates: start: 20130515, end: 20130702
  19. DEXAMETHASONE [Concomitant]
     Dosage: UNK
     Dates: start: 20130703, end: 20130707
  20. DEXAMETHASONE [Concomitant]
     Dosage: UNK
     Dates: start: 20130708
  21. FLUCONAZOLE [Concomitant]
     Dosage: 1 DF, UNK
     Route: 048
     Dates: start: 20130617
  22. NYSTATIN [Concomitant]
     Dosage: 1 ML, TDD
     Route: 048
     Dates: start: 20130617
  23. MAGNESIUM HYDROXIDE [Concomitant]
     Dosage: UNK
  24. SIMETICONE [Concomitant]
     Dosage: UNK
  25. ALUMINIUM HYDROXIDE [Concomitant]
     Dosage: 1 DF, UNK
     Dates: start: 20130301
  26. BIOTENE DRY MOUTH [Concomitant]

REACTIONS (1)
  - Pneumonia [Fatal]
